FAERS Safety Report 14983661 (Version 1)
Quarter: 2018Q2

REPORT INFORMATION
  Report Type: Spontaneous
  Country: US (occurrence: US)
  Receive Date: 20180515
  Receipt Date: 20180515
  Transmission Date: 20180711
  Serious: No
  Sender: FDA-Public Use
  Company Number: None

PATIENT
  Sex: Male

DRUGS (2)
  1. METFORMIN [Suspect]
     Active Substance: METFORMIN HYDROCHLORIDE
     Indication: TYPE 2 DIABETES MELLITUS
  2. JANUMET XR [Suspect]
     Active Substance: METFORMIN HYDROCHLORIDE\SITAGLIPTIN PHOSPHATE

REACTIONS (9)
  - Balance disorder [None]
  - Abdominal pain upper [None]
  - Nausea [None]
  - Lactic acidosis [None]
  - Vomiting [None]
  - Dizziness [None]
  - Abdominal distension [None]
  - Somnolence [None]
  - Dyspnoea [None]
